FAERS Safety Report 13983492 (Version 2)
Quarter: 2017Q3

REPORT INFORMATION
  Report Type: Spontaneous
  Country: US (occurrence: US)
  Receive Date: 20170918
  Receipt Date: 20170920
  Transmission Date: 20171128
  Serious: No
  Sender: FDA-Public Use
  Company Number: US-RECKITT BENCKISER HEALTHCARE INT LIMITED-RB-90043-2017

PATIENT
  Age: 89 Year
  Sex: Female

DRUGS (3)
  1. MUCINEX [Suspect]
     Active Substance: GUAIFENESIN
     Indication: RESPIRATORY TRACT CONGESTION
     Dosage: UNK, QD
     Route: 065
  2. MUCINEX [Suspect]
     Active Substance: GUAIFENESIN
     Indication: CHRONIC OBSTRUCTIVE PULMONARY DISEASE
  3. MUCINEX [Suspect]
     Active Substance: GUAIFENESIN
     Indication: ASTHMA

REACTIONS (1)
  - Product use in unapproved indication [Unknown]
